FAERS Safety Report 5404023-5 (Version None)
Quarter: 2007Q3

REPORT INFORMATION
  Report Type: 
  Country: None (occurrence: None)
  Receive Date: 20070730
  Receipt Date: 20070614
  Transmission Date: 20080115
  Serious: Yes (Hospitalization)
  Sender: FDA-Public Use
  Company Number: 6035081

PATIENT
  Age: 25 Year
  Sex: Male

DRUGS (3)
  1. CIPROFLOXACIN [Suspect]
     Indication: EYE INFECTION
     Dosage: 1500 MG (750 MG, 2 IN 1 D)
  2. BENZYLPENICILLIN (BENZYLPENICILLIN) [Concomitant]
  3. CEFTAZIDIME [Concomitant]

REACTIONS (5)
  - CONDITION AGGRAVATED [None]
  - EYE EXCISION [None]
  - EYE INFECTION [None]
  - HYPOPYON [None]
  - KERATITIS [None]
